FAERS Safety Report 12717676 (Version 1)
Quarter: 2016Q3

REPORT INFORMATION
  Report Type: Spontaneous
  Country: US (occurrence: US)
  Receive Date: 20160906
  Receipt Date: 20160906
  Transmission Date: 20161109
  Serious: No
  Sender: FDA-Public Use
  Company Number: US-AMNEAL PHARMACEUTICALS-2016AMN00367

PATIENT
  Age: 66 Year
  Sex: Female
  Weight: 45.35 kg

DRUGS (1)
  1. BENZONATATE. [Suspect]
     Active Substance: BENZONATATE
     Indication: COUGH
     Dosage: 100 MG, 3X/DAY
     Route: 048
     Dates: start: 20150811, end: 20150813

REACTIONS (4)
  - Feeling abnormal [None]
  - Haematochezia [None]
  - Malaise [None]
  - Constipation [None]

NARRATIVE: CASE EVENT DATE: 20150813
